FAERS Safety Report 24376293 (Version 1)
Quarter: 2024Q3

REPORT INFORMATION
  Report Type: Spontaneous
  Country: US (occurrence: None)
  Receive Date: 20240927
  Receipt Date: 20240927
  Transmission Date: 20241017
  Serious: Yes (unspecified)
  Sender: Public
  Company Number: None

PATIENT
  Sex: 0

DRUGS (1)
  1. LETROZOLE [Suspect]
     Active Substance: LETROZOLE
     Dates: start: 20231001, end: 20240926

REACTIONS (3)
  - Arthralgia [None]
  - Trigger finger [None]
  - Posterior tibial tendon dysfunction [None]

NARRATIVE: CASE EVENT DATE: 20240101
